FAERS Safety Report 5488715-8 (Version None)
Quarter: 2007Q4

REPORT INFORMATION
  Report Type: 
  Country: None (occurrence: None)
  Receive Date: 20071017
  Receipt Date: 20071006
  Transmission Date: 20080405
  Serious: Yes (Hospitalization)
  Sender: FDA-Public Use
  Company Number: PFIZER INC-2007082509

PATIENT
  Age: 57 Year
  Sex: Male
  Weight: 79 kg

DRUGS (1)
  1. SU-011,248 [Suspect]
     Indication: THYROID CANCER
     Route: 048

REACTIONS (1)
  - TRACHEO-OESOPHAGEAL FISTULA [None]
